FAERS Safety Report 7477764-6 (Version None)
Quarter: 2011Q2

REPORT INFORMATION
  Report Type: 
  Country: None (occurrence: None)
  Receive Date: 20110513
  Receipt Date: 20110504
  Transmission Date: 20111010
  Serious: Yes (Death, Hospitalization)
  Sender: FDA-Public Use
  Company Number: US-AMGEN-USASP2011023286

PATIENT
  Age: 65 Year
  Sex: Male

DRUGS (3)
  1. NEUPOGEN [Suspect]
     Indication: CHEMOTHERAPY
     Dosage: UNK
     Dates: start: 20110405, end: 20110408
  2. PREDNISONE [Concomitant]
  3. CHEMOTHERAPEUTICS [Concomitant]
     Dosage: UNK

REACTIONS (3)
  - LUNG NEOPLASM MALIGNANT [None]
  - CHRONIC OBSTRUCTIVE PULMONARY DISEASE [None]
  - RESPIRATORY FAILURE [None]
